FAERS Safety Report 20727131 (Version 3)
Quarter: 2022Q2

REPORT INFORMATION
  Report Type: Spontaneous
  Country: US (occurrence: US)
  Receive Date: 20220419
  Receipt Date: 20220617
  Transmission Date: 20220720
  Serious: Yes (Death, Other)
  Sender: FDA-Public Use
  Company Number: US-ALLERGAN-2212921US

PATIENT
  Sex: Male

DRUGS (5)
  1. VRAYLAR [Suspect]
     Active Substance: CARIPRAZINE
     Indication: Product used for unknown indication
     Dosage: 3 MG, QD
     Route: 048
  2. METHAMPHETAMINE [Suspect]
     Active Substance: METHAMPHETAMINE
     Indication: Product used for unknown indication
  3. SAPHRIS [Concomitant]
     Active Substance: ASENAPINE MALEATE
     Indication: Hallucination, auditory
     Dosage: 10 MG, QHS
     Route: 048
     Dates: start: 20190829
  4. GABAPENTIN [Concomitant]
     Active Substance: GABAPENTIN
     Indication: Anxiety
     Dosage: 2 TB QHS
     Route: 048
     Dates: start: 20210105
  5. XANAL [Concomitant]
     Indication: Anxiety
     Dosage: HALF OF TB ORAL BID/ 2 TB ORAL QHS
     Dates: start: 20190829

REACTIONS (2)
  - Death [Fatal]
  - Overdose [Fatal]
